FAERS Safety Report 9244666 (Version 2)
Quarter: 2013Q2

REPORT INFORMATION
  Report Type: Spontaneous
  Country: BR (occurrence: BR)
  Receive Date: 20130422
  Receipt Date: 20130510
  Transmission Date: 20140414
  Serious: Yes (Other)
  Sender: FDA-Public Use
  Company Number: PHHY2013BR037964

PATIENT
  Age: 8 Year
  Sex: Male

DRUGS (1)
  1. RITALINA [Suspect]
     Indication: ATTENTION DEFICIT/HYPERACTIVITY DISORDER
     Dosage: 2.5 DF, QD
     Route: 048

REACTIONS (11)
  - Suicide attempt [Unknown]
  - Intentional self-injury [Unknown]
  - Aggression [Unknown]
  - Mental impairment [Unknown]
  - Learning disorder [Unknown]
  - Screaming [Unknown]
  - Crying [Unknown]
  - Scratch [Unknown]
  - Onychophagia [Unknown]
  - Disturbance in social behaviour [Unknown]
  - Decreased appetite [Not Recovered/Not Resolved]
